FAERS Safety Report 17105767 (Version 1)
Quarter: 2019Q4

REPORT INFORMATION
  Report Type: Spontaneous
  Country: CZ (occurrence: CZ)
  Receive Date: 20191203
  Receipt Date: 20191203
  Transmission Date: 20200122
  Serious: Yes (Other)
  Sender: FDA-Public Use
  Company Number: CZ-PFIZER INC-2019515418

PATIENT
  Sex: Male

DRUGS (14)
  1. ENTRESTO [Suspect]
     Active Substance: SACUBITRIL\VALSARTAN
     Dosage: 75 MG, 1X/DAY, TWO AND HALF DOSAGE FORM OF 50 MG
     Route: 065
     Dates: start: 20191101
  2. CARVEDILOL. [Concomitant]
     Active Substance: CARVEDILOL
     Dosage: 12.5 MG, 1 DOSE IN THE MORNING AND 1.5 DOSE IN THE EVENING
     Route: 065
     Dates: start: 20191101
  3. ATORVASTATIN CALCIUM. [Suspect]
     Active Substance: ATORVASTATIN CALCIUM
     Dosage: 1 DF, 1X/DAY
     Route: 065
  4. AMLODIPINE BESILATE [Concomitant]
     Active Substance: AMLODIPINE BESYLATE
     Dosage: UNK
     Route: 065
     Dates: start: 20191018
  5. PROCORALAN [Concomitant]
     Active Substance: IVABRADINE
     Dosage: 2 DF, 1X/DAY
     Route: 065
  6. FUROSEMIDE. [Suspect]
     Active Substance: FUROSEMIDE
     Dosage: 1.5 DF, 1X/DAY
     Route: 065
     Dates: end: 20191004
  7. RAMIPRIL. [Concomitant]
     Active Substance: RAMIPRIL
     Dosage: 2 DF, 1X/DAY
     Route: 065
  8. SPIRONOLACTONE. [Concomitant]
     Active Substance: SPIRONOLACTONE
     Dosage: 0.5 DF, 1X/DAY
     Route: 065
  9. ASA [Concomitant]
     Active Substance: ASPIRIN
     Dosage: 100 MG, 1X/DAY
     Route: 065
  10. IVABRADINE [Suspect]
     Active Substance: IVABRADINE
     Dosage: 1 DF, 2X/DAY
     Route: 065
     Dates: start: 20190920, end: 20191101
  11. CARVEDILOL. [Concomitant]
     Active Substance: CARVEDILOL
     Dosage: 25 MG, 2X/DAY
     Route: 065
  12. ENTRESTO [Suspect]
     Active Substance: SACUBITRIL\VALSARTAN
     Dosage: 100 MG, 2X/DAY
     Route: 065
     Dates: start: 20190920, end: 20191004
  13. THIAMINE HYDROCHLORIDE. [Concomitant]
     Active Substance: THIAMINE HYDROCHLORIDE
     Dosage: 1 DF, 1X/DAY
     Route: 065
  14. CARVEDILOL. [Concomitant]
     Active Substance: CARVEDILOL
     Dosage: 12.5 MG, 2X/DAY
     Route: 065
     Dates: start: 20190920

REACTIONS (8)
  - Blood potassium abnormal [Unknown]
  - Echocardiogram abnormal [Unknown]
  - Hyperkalaemia [Recovering/Resolving]
  - Heart rate abnormal [Unknown]
  - Glomerular filtration rate abnormal [Unknown]
  - Blood pressure abnormal [Unknown]
  - N-terminal prohormone brain natriuretic peptide abnormal [Unknown]
  - Blood creatinine abnormal [Unknown]

NARRATIVE: CASE EVENT DATE: 20190726
